FAERS Safety Report 15105450 (Version 1)
Quarter: 2018Q3

REPORT INFORMATION
  Report Type: Spontaneous
  Country: US (occurrence: US)
  Receive Date: 20180704
  Receipt Date: 20180704
  Transmission Date: 20181010
  Serious: Yes (Death, Other)
  Sender: FDA-Public Use
  Company Number: US-TEVA-2018-US-917244

PATIENT
  Sex: Female

DRUGS (1)
  1. WARFARIN SODIUM. [Suspect]
     Active Substance: WARFARIN SODIUM
     Route: 065
     Dates: start: 201703, end: 201802

REACTIONS (4)
  - International normalised ratio [Unknown]
  - Death [Fatal]
  - Contusion [Unknown]
  - Calciphylaxis [Unknown]

NARRATIVE: CASE EVENT DATE: 201802
